FAERS Safety Report 5783529-3 (Version None)
Quarter: 2008Q2

REPORT INFORMATION
  Report Type: 
  Country: None (occurrence: None)
  Receive Date: 20080605
  Receipt Date: 20080409
  Transmission Date: 20081010
  Serious: No
  Sender: FDA-Public Use
  Company Number: A0716178A

PATIENT

DRUGS (1)
  1. ALLI [Suspect]

REACTIONS (8)
  - DRUG INEFFECTIVE [None]
  - INCREASED TENDENCY TO BRUISE [None]
  - JOINT INJURY [None]
  - MALAISE [None]
  - MENSTRUAL DISORDER [None]
  - MENSTRUATION DELAYED [None]
  - VITAMIN K DECREASED [None]
  - WEIGHT FLUCTUATION [None]
